FAERS Safety Report 4536243-6 (Version None)
Quarter: 2004Q4

REPORT INFORMATION
  Report Type: 
  Country: None (occurrence: None)
  Receive Date: 20041223
  Receipt Date: 20040510
  Transmission Date: 20050328
  Serious: No
  Sender: FDA-Public Use
  Company Number: US-GLAXOSMITHKLINE-A0510237A

PATIENT
  Age: 35 Year
  Sex: Female

DRUGS (7)
  1. FLONASE [Suspect]
     Dosage: 2SPR PER DAY
     Route: 045
  2. SUDAFED S.A. [Concomitant]
  3. OXYCONTIN [Concomitant]
  4. SOMA [Concomitant]
  5. ATIVAN [Concomitant]
  6. LORTAB [Concomitant]
  7. TEGRETOL [Concomitant]

REACTIONS (2)
  - DRUG INEFFECTIVE [None]
  - PHARMACEUTICAL PRODUCT COMPLAINT [None]
